FAERS Safety Report 21827421 (Version 1)
Quarter: 2023Q1

REPORT INFORMATION
  Report Type: Spontaneous
  Country: US (occurrence: US)
  Receive Date: 20230106
  Receipt Date: 20230106
  Transmission Date: 20230418
  Serious: No
  Sender: FDA-Public Use
  Company Number: US-COOPERSURGICAL, INC.-US-2022CPS001068

PATIENT
  Age: 16 Year
  Sex: Female
  Weight: 83.9 kg

DRUGS (3)
  1. PARAGARD T 380A [Suspect]
     Active Substance: COPPER
     Indication: Contraception
     Dosage: UNK
     Dates: start: 201509, end: 201509
  2. WELLBUTRIN [Concomitant]
     Active Substance: BUPROPION HYDROCHLORIDE
     Indication: Antidepressant drug level therapeutic
     Route: 065
  3. SPIRONOLACTONE [Concomitant]
     Active Substance: SPIRONOLACTONE
     Indication: Acne
     Route: 015

REACTIONS (3)
  - Complication of device insertion [Recovered/Resolved]
  - Procedural pain [Unknown]
  - Presyncope [Unknown]

NARRATIVE: CASE EVENT DATE: 20150901
